FAERS Safety Report 20543844 (Version 1)
Quarter: 2022Q1

REPORT INFORMATION
  Report Type: Other
  Country: AU (occurrence: AU)
  Receive Date: 20220303
  Receipt Date: 20220303
  Transmission Date: 20220423
  Serious: Yes (Death)
  Sender: FDA-Public Use
  Company Number: AU-TOLMAR, INC.-22AU033156

PATIENT
  Sex: Male

DRUGS (1)
  1. ELIGARD [Suspect]
     Active Substance: LEUPROLIDE ACETATE
     Indication: Prostate cancer
     Dosage: 45 MILLIGRAM, Q 6 MONTH
     Dates: start: 20180312

REACTIONS (1)
  - Death [Fatal]
